FAERS Safety Report 6244347-5 (Version None)
Quarter: 2009Q2

REPORT INFORMATION
  Report Type: 
  Country: None (occurrence: None)
  Receive Date: 20090625
  Receipt Date: 20090616
  Transmission Date: 20091009
  Serious: Yes (Hospitalization)
  Sender: FDA-Public Use
  Company Number: US-ROCHE-639407

PATIENT
  Sex: Female
  Weight: 76.2 kg

DRUGS (11)
  1. PEG-INTERFERON ALFA 2A (RO 25-8310) [Suspect]
     Dosage: LAST DOSE: 05 JUNE 2009 DRUG TEMPORARILY INTERRUPTED: 10 JUNE 2009
     Route: 058
     Dates: start: 20090501, end: 20090610
  2. RIBAVIRIN [Suspect]
     Dosage: LAST DOSE: 10 JUNE 2009 FREQUENCY: QD
     Route: 048
     Dates: start: 20090501, end: 20090610
  3. ASPIRIN [Concomitant]
  4. ATENOLOL [Concomitant]
  5. HUMULIN 70/30 [Concomitant]
     Dosage: TDD REPORTED AS 70/30
  6. IBUPROFEN [Concomitant]
  7. IMITREX [Concomitant]
     Dosage: TDD: PRN
  8. JANUVIA [Concomitant]
  9. LAMOTRIGINE [Concomitant]
  10. LISINOPRIL [Concomitant]
  11. PREVACID [Concomitant]

REACTIONS (1)
  - DIABETIC KETOACIDOSIS [None]
